FAERS Safety Report 12879789 (Version 1)
Quarter: 2016Q4

REPORT INFORMATION
  Report Type: Spontaneous
  Country: US (occurrence: US)
  Receive Date: 20161025
  Receipt Date: 20161025
  Transmission Date: 20170207
  Serious: No
  Sender: FDA-Public Use
  Company Number: US-BAYER-2016-204808

PATIENT
  Age: 65 Year
  Sex: Female
  Weight: 81.63 kg

DRUGS (2)
  1. ALEVE PM [Suspect]
     Active Substance: DIPHENHYDRAMINE HYDROCHLORIDE\NAPROXEN SODIUM
     Indication: PAIN
     Dosage: 1 DF, ONCE
     Route: 048
     Dates: start: 20161020, end: 20161020
  2. LISINOPRIL. [Concomitant]
     Active Substance: LISINOPRIL

REACTIONS (4)
  - Product use issue [Unknown]
  - Dizziness [Not Recovered/Not Resolved]
  - Vertigo [Recovering/Resolving]
  - Gait disturbance [Recovering/Resolving]
